FAERS Safety Report 11075654 (Version 1)
Quarter: 2015Q2

REPORT INFORMATION
  Report Type: Spontaneous
  Country: IN (occurrence: IN)
  Receive Date: 20150429
  Receipt Date: 20150429
  Transmission Date: 20150821
  Serious: Yes (Other)
  Sender: FDA-Public Use
  Company Number: IN-AUROBINDO-AUR-APL-2015-03629

PATIENT
  Age: 15 Year
  Sex: Male

DRUGS (2)
  1. RISPERIDONE 2MG [Suspect]
     Active Substance: RISPERIDONE
     Indication: SCHIZOPHRENIA
     Dosage: 2 MG, UNK
     Route: 065
  2. HALOPERIDOL. [Suspect]
     Active Substance: HALOPERIDOL
     Indication: SCHIZOPHRENIA
     Dosage: UNK
     Route: 065

REACTIONS (7)
  - Excessive eye blinking [Recovered/Resolved]
  - Tardive dyskinesia [Recovered/Resolved]
  - Oromandibular dystonia [Recovered/Resolved]
  - Psychotic behaviour [Recovered/Resolved]
  - Movement disorder [Recovered/Resolved]
  - Grimacing [Recovered/Resolved]
  - Dyskinesia [Recovered/Resolved]
